FAERS Safety Report 8761692 (Version 1)
Quarter: 2012Q4

REPORT INFORMATION
  Report Type: Spontaneous
  Country: US (occurrence: None)
  Receive Date: 20120830
  Receipt Date: 20120830
  Transmission Date: 20130627
  Serious: Yes (Disabling)
  Sender: FDA-Public Use
  Company Number: None

PATIENT
  Age: 57 Year
  Sex: Female
  Weight: 81.65 kg

DRUGS (1)
  1. SIMVASTATIN [Suspect]
     Indication: HIGH CHOLESTEROL
     Dosage: dosage amount redacted
     Route: 048
     Dates: start: 20041118, end: 20120809

REACTIONS (3)
  - Muscular weakness [None]
  - Myalgia [None]
  - Asthenia [None]
